FAERS Safety Report 8903130 (Version 1)
Quarter: 2012Q4

REPORT INFORMATION
  Report Type: 
  Country: NL (occurrence: NL)
  Receive Date: 20121112
  Receipt Date: 20121112
  Transmission Date: 20130627
  Serious: Yes (Other)
  Sender: FDA-Public Use
  Company Number: NL-ELI_LILLY_AND_COMPANY-NL201210005612

PATIENT
  Sex: Male

DRUGS (3)
  1. ZYPADHERA [Suspect]
     Indication: SCHIZOPHRENIA
     Dosage: 210mg/ every 2 weeks
     Dates: start: 201206
  2. ZYPADHERA [Suspect]
     Dosage: 405mg, every 2 weeks
  3. OLANZAPINE [Suspect]
     Indication: SCHIZOPHRENIA
     Dosage: 10mg, unk
     Route: 048

REACTIONS (9)
  - Fall [Recovered/Resolved]
  - Agitation [Recovered/Resolved]
  - Dysarthria [Recovered/Resolved]
  - Somnolence [Recovered/Resolved]
  - Gait disturbance [Recovered/Resolved]
  - Injection site haemorrhage [Recovered/Resolved]
  - Musculoskeletal pain [Recovered/Resolved]
  - Injection site extravasation [Recovered/Resolved]
  - Prescribed overdose [Recovered/Resolved]
